FAERS Safety Report 20763482 (Version 2)
Quarter: 2022Q2

REPORT INFORMATION
  Report Type: Spontaneous
  Country: US (occurrence: US)
  Receive Date: 20220428
  Receipt Date: 20220509
  Transmission Date: 20220720
  Serious: No
  Sender: FDA-Public Use
  Company Number: US-ORGANON-O2204USA002002

PATIENT
  Age: 33 Year
  Sex: Male
  Weight: 91.156 kg

DRUGS (2)
  1. PREGNYL [Suspect]
     Active Substance: CHORIOGONADOTROPIN ALFA
     Indication: Hypogonadism male
     Dosage: 750 INTERNATIONAL UNIT, BIW
     Route: 058
     Dates: start: 20220407
  2. STERILE WATER [Suspect]
     Active Substance: WATER
     Dosage: UNK, BIW
     Route: 058
     Dates: start: 20220407

REACTIONS (2)
  - Product storage error [Unknown]
  - No adverse event [Unknown]

NARRATIVE: CASE EVENT DATE: 20220419
